FAERS Safety Report 5010818-2 (Version None)
Quarter: 2006Q2

REPORT INFORMATION
  Report Type: 
  Country: None (occurrence: None)
  Receive Date: 20060523
  Receipt Date: 20060510
  Transmission Date: 20061013
  Serious: Yes (Hospitalization, Other)
  Sender: FDA-Public Use
  Company Number: 2006063102

PATIENT
  Sex: Female

DRUGS (25)
  1. DETROL [Suspect]
     Indication: HYPERTONIC BLADDER
     Dosage: ORAL
     Route: 048
     Dates: start: 20050101, end: 20050101
  2. DETROL LA [Suspect]
     Indication: HYPERTONIC BLADDER
     Dosage: 4 MG (4 MG, 1 IN 1 D), ORAL
     Route: 048
     Dates: start: 20050101
  3. LEVOXYL [Concomitant]
  4. PREMARIN [Concomitant]
  5. VERAPAMIL [Concomitant]
  6. PROCRIT [Concomitant]
  7. PREVACID [Concomitant]
  8. PROZAC [Concomitant]
  9. FOLIC ACID [Concomitant]
  10. PROPRANOLOL [Concomitant]
  11. NEURONTIN [Concomitant]
  12. TRAMADOL HCL [Concomitant]
  13. EVOXAC [Concomitant]
  14. FOSAMAX [Concomitant]
  15. ASPIRIN [Concomitant]
  16. IRON (IRON) [Concomitant]
  17. BENADRYL [Concomitant]
  18. MULTIVITAMIN [Concomitant]
  19. FISH OIL (FISH OIL) [Concomitant]
  20. VITAMIN C (VITAMIN C) [Concomitant]
  21. VITAMIN E [Concomitant]
  22. CALCIUM (CALCIUM) [Concomitant]
  23. ACETAMINOPHEN [Concomitant]
  24. ENBREL [Concomitant]
  25. VITAMIN B12 [Concomitant]

REACTIONS (6)
  - DRUG INEFFECTIVE [None]
  - FALL [None]
  - HIP FRACTURE [None]
  - MICTURITION URGENCY [None]
  - PAIN [None]
  - URINARY INCONTINENCE [None]
